FAERS Safety Report 4917028-5 (Version None)
Quarter: 2006Q1

REPORT INFORMATION
  Report Type: 
  Country: None (occurrence: None)
  Receive Date: 20060221
  Receipt Date: 20050131
  Transmission Date: 20060701
  Serious: Yes (Hospitalization)
  Sender: FDA-Public Use
  Company Number: DE-AMGEN-UK110750

PATIENT
  Sex: Female

DRUGS (11)
  1. KINERET [Suspect]
     Indication: DRUG USE FOR UNKNOWN INDICATION
     Route: 058
     Dates: start: 20030901, end: 20041204
  2. PREDNISOLONE [Suspect]
     Route: 065
     Dates: start: 19940101
  3. PANTOZOL [Concomitant]
     Route: 065
     Dates: start: 20031101
  4. NEBILET [Concomitant]
     Route: 065
     Dates: start: 20041001
  5. NITRENDIPINE [Concomitant]
     Route: 065
     Dates: start: 20030901
  6. ENALAPRIL [Concomitant]
     Route: 065
     Dates: start: 20020101
  7. L-THYROXIN [Concomitant]
     Route: 065
     Dates: start: 19990101
  8. PLAVIX [Concomitant]
     Route: 065
     Dates: start: 20041201
  9. BUPRENORPHINE HCL [Concomitant]
     Route: 065
  10. ALFACALCIDOL [Concomitant]
     Route: 065
     Dates: start: 20021001
  11. METOCLOPRAMIDE [Concomitant]
     Route: 065

REACTIONS (26)
  - ATROPHY [None]
  - BACK PAIN [None]
  - BLOOD CHOLESTEROL INCREASED [None]
  - BLOOD CREATINE INCREASED [None]
  - BLOOD GLUCOSE INCREASED [None]
  - BLOOD THYROID STIMULATING HORMONE INCREASED [None]
  - BRAIN OEDEMA [None]
  - CEREBELLAR HAEMORRHAGE [None]
  - CEREBELLAR INFARCTION [None]
  - CEREBRAL INFARCTION [None]
  - CEREBRAL ISCHAEMIA [None]
  - DIARRHOEA [None]
  - DIFFICULTY IN WALKING [None]
  - DIZZINESS [None]
  - ENCEPHALOPATHY [None]
  - GASTRITIS [None]
  - HAEMORRHAGE [None]
  - HAEMORRHAGIC TRANSFORMATION STROKE [None]
  - HERPES ZOSTER [None]
  - HERPES ZOSTER MULTI-DERMATOMAL [None]
  - INJECTION SITE REACTION [None]
  - NAUSEA [None]
  - PARAESTHESIA [None]
  - POST HERPETIC NEURALGIA [None]
  - VERTIGO [None]
  - VOMITING [None]
